FAERS Safety Report 4764661-X (Version None)
Quarter: 2005Q3

REPORT INFORMATION
  Report Type: 
  Country: None (occurrence: None)
  Receive Date: 20050909
  Receipt Date: 20050829
  Transmission Date: 20060218
  Serious: Yes (Other)
  Sender: FDA-Public Use
  Company Number: FR-GLAXOSMITHKLINE-B0393001A

PATIENT
  Age: 69 Year
  Sex: Male

DRUGS (1)
  1. SERETIDE DISKUS [Suspect]
     Indication: ASTHMA
     Route: 055

REACTIONS (2)
  - DYSPHONIA [None]
  - LARYNGEAL CANCER [None]
